FAERS Safety Report 5782145-7 (Version None)
Quarter: 2008Q2

REPORT INFORMATION
  Report Type: 
  Country: None (occurrence: None)
  Receive Date: 20080623
  Receipt Date: 20080617
  Transmission Date: 20081010
  Serious: Yes (Death)
  Sender: FDA-Public Use
  Company Number: JP-ASTRAZENECA-2008AP04732

PATIENT
  Age: 77 Year
  Sex: Female

DRUGS (5)
  1. SEROQUEL [Suspect]
     Route: 048
  2. SEROQUEL [Suspect]
     Route: 048
  3. ARICEPT [Concomitant]
     Route: 048
  4. SILECE [Concomitant]
     Route: 048
  5. RISPERDAL [Concomitant]
     Route: 048

REACTIONS (1)
  - DEATH [None]
